FAERS Safety Report 6573765-0 (Version None)
Quarter: 2010Q1

REPORT INFORMATION
  Report Type: 
  Country: None (occurrence: None)
  Receive Date: 20100208
  Receipt Date: 20100202
  Transmission Date: 20100710
  Serious: Yes (Death)
  Sender: FDA-Public Use
  Company Number: B0631624A

PATIENT
  Sex: Male

DRUGS (1)
  1. ARIXTRA [Suspect]
     Route: 065

REACTIONS (1)
  - CEREBRAL HAEMORRHAGE [None]
